FAERS Safety Report 5329691-8 (Version None)
Quarter: 2007Q2

REPORT INFORMATION
  Report Type: 
  Country: None (occurrence: None)
  Receive Date: 20070515
  Receipt Date: 20070510
  Transmission Date: 20071010
  Serious: Yes (Death)
  Sender: FDA-Public Use
  Company Number: 2007-158538-NL

PATIENT
  Age: 58 Year
  Sex: Male

DRUGS (1)
  1. DANAPAROID SODIUM [Suspect]

REACTIONS (1)
  - HAEMORRHAGE [None]
